FAERS Safety Report 4723923-2 (Version None)
Quarter: 2005Q3

REPORT INFORMATION
  Report Type: 
  Country: None (occurrence: None)
  Receive Date: 20050722
  Receipt Date: 20050718
  Transmission Date: 20060218
  Serious: Yes (Death)
  Sender: FDA-Public Use
  Company Number: 200511320BWH

PATIENT

DRUGS (1)
  1. TRASYLOL [Suspect]
     Dosage: INTRAVENOUS
     Route: 042
     Dates: start: 20050601

REACTIONS (1)
  - GRAFT THROMBOSIS [None]
